FAERS Safety Report 7088616-8 (Version None)
Quarter: 2010Q4

REPORT INFORMATION
  Report Type: 
  Country: None (occurrence: None)
  Receive Date: 20101029
  Receipt Date: 20101020
  Transmission Date: 20110411
  Serious: Yes (Other)
  Sender: FDA-Public Use
  Company Number: US-DEXPHARM-20101651

PATIENT
  Sex: Female
  Weight: 50 kg

DRUGS (4)
  1. OMEPRAZOLE [Suspect]
     Indication: FLATULENCE
     Dosage: 20 MG, ORAL
     Route: 048
     Dates: start: 20101013, end: 20101013
  2. TITRALAC [Suspect]
     Indication: FLATULENCE
     Dosage: 1 DF TWICE A DAY
     Dates: end: 20101013
  3. PROAIR HFA [Concomitant]
  4. SALBUTAMOL [Concomitant]

REACTIONS (3)
  - COUGH [None]
  - DYSPNOEA [None]
  - PHARYNGEAL OEDEMA [None]
